FAERS Safety Report 8869333 (Version 2)
Quarter: 2013Q1

REPORT INFORMATION
  Report Type: Spontaneous
  Country: GB (occurrence: None)
  Receive Date: 20121024
  Receipt Date: 20121217
  Transmission Date: 20140127
  Serious: Yes (Life-Threatening, Hospitalization)
  Sender: FDA-Public Use
  Company Number: 2012HINREG0088

PATIENT
  Age: 37 Year
  Sex: Female

DRUGS (3)
  1. LEVETIRACETAM [Suspect]
     Indication: CONVULSION
     Dates: start: 20120928
  2. LAMOTRIGINE (LAMOTRIGINE) TABLET [Concomitant]
  3. KEPPRA (KEPPRA) [Concomitant]

REACTIONS (4)
  - Status epilepticus [None]
  - Musculoskeletal discomfort [None]
  - Disturbance in attention [None]
  - Drug ineffective [None]
